FAERS Safety Report 17540523 (Version 1)
Quarter: 2020Q1

REPORT INFORMATION
  Report Type: Spontaneous
  Country: FR (occurrence: FR)
  Receive Date: 20200313
  Receipt Date: 20200313
  Transmission Date: 20200409
  Serious: Yes (Other)
  Sender: FDA-Public Use
  Company Number: FR-JNJFOC-20200304670

PATIENT
  Age: 75 Year
  Sex: Female

DRUGS (2)
  1. DUROGESIC [Suspect]
     Active Substance: FENTANYL
     Indication: PAIN
     Route: 062
     Dates: end: 20200125
  2. MORPHINE RENAUDIN [Suspect]
     Active Substance: MORPHINE
     Indication: PAIN
     Route: 058
     Dates: start: 20200121

REACTIONS (3)
  - Myoclonus [Recovered/Resolved]
  - Labelled drug-drug interaction medication error [Recovered/Resolved]
  - Sedation [Recovered/Resolved]

NARRATIVE: CASE EVENT DATE: 20200121
